FAERS Safety Report 17407321 (Version 1)
Quarter: 2020Q1

REPORT INFORMATION
  Report Type: Spontaneous
  Country: US (occurrence: US)
  Receive Date: 20200212
  Receipt Date: 20200212
  Transmission Date: 20200409
  Serious: No
  Sender: FDA-Public Use
  Company Number: US-MYLANLABS-2020M1013193

PATIENT
  Age: 85 Year
  Sex: Female
  Weight: 63.5 kg

DRUGS (1)
  1. PERPHENAZINE AND AMITRIPTYLINE HYDROCHLORIDE TABLETS, USP [Suspect]
     Active Substance: PERPHENAZINE
     Indication: IRRITABLE BOWEL SYNDROME
     Dosage: UNK UNK, BIWEEKLY
     Route: 065

REACTIONS (3)
  - Weight increased [Unknown]
  - Off label use [Not Recovered/Not Resolved]
  - Somnolence [Unknown]
